FAERS Safety Report 9052587 (Version 2)
Quarter: 2013Q4

REPORT INFORMATION
  Report Type: Spontaneous
  Country: US (occurrence: US)
  Receive Date: 20130207
  Receipt Date: 20131023
  Transmission Date: 20140711
  Serious: Yes (Other)
  Sender: FDA-Public Use
  Company Number: US-PFIZER INC-2013049023

PATIENT
  Age: 38 Year
  Sex: Male
  Weight: 104 kg

DRUGS (5)
  1. LYRICA [Suspect]
     Indication: NERVE INJURY
     Dosage: UNK
     Dates: start: 2007
  2. LYRICA [Suspect]
     Dosage: 150 MG, 3X/DAY
     Dates: start: 2011
  3. VALIUM [Concomitant]
     Indication: ANXIETY
     Dosage: UNK
  4. VALIUM [Concomitant]
     Indication: MUSCLE SPASMS
  5. ELAVIL [Concomitant]
     Indication: NERVE INJURY
     Dosage: UNK

REACTIONS (3)
  - Cervical vertebral fracture [Unknown]
  - Pain [Unknown]
  - Off label use [Unknown]
